FAERS Safety Report 8267103-5 (Version None)
Quarter: 2012Q2

REPORT INFORMATION
  Report Type: 
  Country: None (occurrence: None)
  Receive Date: 20120409
  Receipt Date: 20120328
  Transmission Date: 20120825
  Serious: Yes (Other)
  Sender: FDA-Public Use
  Company Number: CA-JNJFOC-20120315241

PATIENT
  Sex: Female
  Weight: 72 kg

DRUGS (1)
  1. REMICADE [Suspect]
     Indication: CROHN'S DISEASE
     Dates: start: 20080110, end: 20111228

REACTIONS (1)
  - NEOPLASM MALIGNANT [None]
